FAERS Safety Report 6259286 (Version 31)
Quarter: 2013Q3

REPORT INFORMATION
  Report Type: Spontaneous
  Country: US (occurrence: US)
  Receive Date: 20070312
  Receipt Date: 20130904
  Transmission Date: 20140515
  Serious: Yes (Hospitalization, Disabling, Other)
  Sender: FDA-Public Use
  Company Number: US-ROCHE-438845

PATIENT
  Age: 27 Year
  Sex: Female
  Weight: 70.3 kg

DRUGS (2)
  1. ACCUTANE [Suspect]
     Indication: ACNE CYSTIC
     Route: 048
     Dates: start: 19930501, end: 19931015
  2. ORTHO TRI-CYCLEN [Concomitant]
     Route: 065

REACTIONS (45)
  - Proctitis ulcerative [Unknown]
  - Colitis ulcerative [Recovering/Resolving]
  - Ileus [Recovered/Resolved]
  - Bronchitis [Recovering/Resolving]
  - Anal fissure [Unknown]
  - Inflammatory bowel disease [Unknown]
  - Supraventricular extrasystoles [Unknown]
  - Myalgia [Unknown]
  - Ventricular extrasystoles [Unknown]
  - Colitis [Unknown]
  - Scoliosis [Unknown]
  - Autoimmune disorder [Unknown]
  - Pouchitis [Recovering/Resolving]
  - Gastritis [Unknown]
  - Lower gastrointestinal haemorrhage [Unknown]
  - Pulmonary artery atresia [Unknown]
  - Hiatus hernia [Unknown]
  - Portal vein thrombosis [Unknown]
  - Gastric polyps [Unknown]
  - Benign neoplasm of bladder [Recovered/Resolved]
  - Pseudopolyp [Recovered/Resolved]
  - Pyoderma gangrenosum [Unknown]
  - Suicidal ideation [Unknown]
  - Endometriosis [Unknown]
  - Depression [Unknown]
  - Arthritis [Not Recovered/Not Resolved]
  - Arthralgia [Not Recovered/Not Resolved]
  - Anaemia [Unknown]
  - Fatigue [Unknown]
  - Insomnia [Unknown]
  - Anxiety [Unknown]
  - Back pain [Unknown]
  - Leukopenia [Recovered/Resolved]
  - Neutropenia [Unknown]
  - Irritable bowel syndrome [Unknown]
  - Osteopenia [Not Recovered/Not Resolved]
  - Gastrooesophageal reflux disease [Not Recovered/Not Resolved]
  - Rheumatoid arthritis [Unknown]
  - Bursitis [Not Recovered/Not Resolved]
  - Haemorrhoids [Unknown]
  - Mitral valve incompetence [Unknown]
  - Tricuspid valve incompetence [Unknown]
  - Mitral valve prolapse [Unknown]
  - Ovarian cyst [Unknown]
  - Spondyloarthropathy [Recovering/Resolving]
